FAERS Safety Report 20623075 (Version 2)
Quarter: 2022Q2

REPORT INFORMATION
  Report Type: Report from Study
  Country: UY (occurrence: UY)
  Receive Date: 20220322
  Receipt Date: 20220426
  Transmission Date: 20220721
  Serious: Yes (Death, Hospitalization, Other)
  Sender: FDA-Public Use
  Company Number: UY-BAYER-2022A039013

PATIENT
  Age: 58 Year
  Sex: Male

DRUGS (6)
  1. VENTAVIS [Suspect]
     Active Substance: ILOPROST
     Indication: Pulmonary hypertension
     Dosage: 6 NEBULISATIONS PER DAY
     Route: 055
     Dates: start: 201811, end: 20220301
  2. CHOICE [WARFARIN SODIUM] [Concomitant]
     Indication: Circulating anticoagulant positive
     Dosage: ;4 MG ORALLY EVERY 24 HOURS
     Route: 048
  3. FUROSEMIDE [Concomitant]
     Active Substance: FUROSEMIDE
     Indication: Fluid retention
     Dosage: ;40 MG ORALLY EVERY 12 HOURS
     Route: 048
  4. LEVOTHYROXINE [Concomitant]
     Active Substance: LEVOTHYROXINE
     Dosage: ;50 MG ORALLY EVERY 24 HOURS
     Route: 048
  5. SILDENAFIL [Concomitant]
     Active Substance: SILDENAFIL
     Indication: Pulmonary hypertension
  6. BOSENTAN [Concomitant]
     Active Substance: BOSENTAN
     Indication: Pulmonary hypertension

REACTIONS (3)
  - Cardio-respiratory arrest [Fatal]
  - Lung transplant [Unknown]
  - Complications of transplanted lung [Unknown]

NARRATIVE: CASE EVENT DATE: 20220301
